FAERS Safety Report 13797640 (Version 1)
Quarter: 2017Q3

REPORT INFORMATION
  Report Type: Spontaneous
  Country: US (occurrence: US)
  Receive Date: 20170726
  Receipt Date: 20170726
  Transmission Date: 20171127
  Serious: No
  Sender: FDA-Public Use
  Company Number: None

PATIENT
  Age: 54 Year
  Sex: Male

DRUGS (1)
  1. OTREXUP [Suspect]
     Active Substance: METHOTREXATE

REACTIONS (3)
  - Pain in extremity [None]
  - Finger deformity [None]
  - Grip strength decreased [None]

NARRATIVE: CASE EVENT DATE: 20170724
